FAERS Safety Report 7402891-9 (Version None)
Quarter: 2011Q2

REPORT INFORMATION
  Report Type: 
  Country: None (occurrence: None)
  Receive Date: 20110408
  Receipt Date: 20110331
  Transmission Date: 20111010
  Serious: Yes (Other)
  Sender: FDA-Public Use
  Company Number: DE-GENZYME-FLUD-1000999

PATIENT
  Age: 53 Year
  Sex: Female

DRUGS (14)
  1. FLUDARA [Suspect]
     Indication: T-CELL PROLYMPHOCYTIC LEUKAEMIA
     Dosage: UNK
     Route: 065
  2. CAMPATH [Suspect]
     Dosage: 133 MG, UNK
     Route: 065
  3. MITOXANTRONE [Suspect]
     Indication: T-CELL PROLYMPHOCYTIC LEUKAEMIA
     Dosage: UNK
     Route: 065
  4. CYTOSINE ARABINOSIDE [Suspect]
     Indication: STEM CELL TRANSPLANT
  5. MELPHALAN [Suspect]
     Indication: STEM CELL TRANSPLANT
  6. ETOPOSIDE [Suspect]
     Indication: T-CELL PROLYMPHOCYTIC LEUKAEMIA
     Dosage: UNK
     Route: 065
  7. CAMPATH [Suspect]
     Indication: T-CELL PROLYMPHOCYTIC LEUKAEMIA
     Dosage: UNK
     Route: 065
  8. CARMUSTINE [Suspect]
     Indication: T-CELL PROLYMPHOCYTIC LEUKAEMIA
     Dosage: UNK
     Route: 065
  9. CYCLOPHOSPHAMIDE [Suspect]
     Indication: T-CELL PROLYMPHOCYTIC LEUKAEMIA
     Dosage: UNK
     Route: 065
  10. MELPHALAN [Suspect]
     Indication: T-CELL PROLYMPHOCYTIC LEUKAEMIA
     Dosage: UNK
     Route: 065
  11. CARMUSTINE [Suspect]
     Indication: STEM CELL TRANSPLANT
  12. CAMPATH [Suspect]
     Indication: STEM CELL TRANSPLANT
     Dosage: UNK
     Route: 065
  13. ETOPOSIDE [Suspect]
     Indication: STEM CELL TRANSPLANT
  14. CYTOSINE ARABINOSIDE [Suspect]
     Indication: T-CELL PROLYMPHOCYTIC LEUKAEMIA
     Dosage: UNK
     Route: 065

REACTIONS (2)
  - DISEASE RECURRENCE [None]
  - ACUTE GRAFT VERSUS HOST DISEASE IN SKIN [None]
